FAERS Safety Report 6432091-0 (Version None)
Quarter: 2009Q4

REPORT INFORMATION
  Report Type: 
  Country: None (occurrence: None)
  Receive Date: 20091109
  Receipt Date: 20091027
  Transmission Date: 20100525
  Serious: Yes (Other)
  Sender: FDA-Public Use
  Company Number: FR-ROCHE-665552

PATIENT
  Age: 28 Year
  Sex: Male

DRUGS (1)
  1. ROACCUTANE [Suspect]
     Indication: DRUG USE FOR UNKNOWN INDICATION
     Route: 065
     Dates: end: 20051001

REACTIONS (4)
  - CENTRAL NERVOUS SYSTEM LESION [None]
  - DYSPNOEA [None]
  - PARANOIA [None]
  - SUICIDAL IDEATION [None]
